FAERS Safety Report 6598172-6 (Version None)
Quarter: 2010Q1

REPORT INFORMATION
  Report Type: 
  Country: None (occurrence: None)
  Receive Date: 20100224
  Receipt Date: 20050131
  Transmission Date: 20100710
  Serious: No
  Sender: FDA-Public Use
  Company Number: US-ALLERGAN-200500840

PATIENT
  Age: 45 Year
  Sex: Female

DRUGS (2)
  1. BOTOX [Suspect]
     Indication: MIGRAINE
     Dosage: 200UNITS, PRN
     Route: 030
  2. ZOMIG [Concomitant]
     Indication: MIGRAINE

REACTIONS (4)
  - ADRENAL INSUFFICIENCY [None]
  - FATIGUE [None]
  - HAIR DISORDER [None]
  - HYPOTENSION [None]
